FAERS Safety Report 25944273 (Version 2)
Quarter: 2025Q4

REPORT INFORMATION
  Report Type: Spontaneous
  Country: JP (occurrence: JP)
  Receive Date: 20251021
  Receipt Date: 20251113
  Transmission Date: 20260118
  Serious: Yes (Death, Other)
  Sender: ASTELLAS
  Company Number: JP-ASTELLAS-2025-AER-047796

PATIENT
  Sex: Male

DRUGS (1)
  1. PROGRAF [Suspect]
     Active Substance: TACROLIMUS
     Indication: Interstitial lung disease
     Dosage: LONG-TERM REGULAR ADMINISTRATION
     Route: 048

REACTIONS (4)
  - Feeding disorder [Unknown]
  - Physical deconditioning [Unknown]
  - Death [Fatal]
  - Dysphagia [Unknown]
